FAERS Safety Report 4959059-5 (Version None)
Quarter: 2006Q1

REPORT INFORMATION
  Report Type: 
  Country: None (occurrence: None)
  Receive Date: 20060331
  Receipt Date: 20060324
  Transmission Date: 20060701
  Serious: Yes (Death, Other)
  Sender: FDA-Public Use
  Company Number: 2006UW05200

PATIENT

DRUGS (1)
  1. CASODEX [Suspect]
     Route: 048

REACTIONS (2)
  - DEATH [None]
  - HEPATIC FAILURE [None]
